FAERS Safety Report 9778939 (Version 2)
Quarter: 2014Q1

REPORT INFORMATION
  Report Type: Spontaneous
  Country: US (occurrence: US)
  Receive Date: 20131223
  Receipt Date: 20140124
  Transmission Date: 20141002
  Serious: Yes (Hospitalization)
  Sender: FDA-Public Use
  Company Number: US-BIOMARINAP-US-2013-102139

PATIENT
  Age: 12 Year
  Sex: Female
  Weight: 50 kg

DRUGS (2)
  1. ALDURAZYME [Suspect]
     Indication: MUCOPOLYSACCHARIDOSIS I
     Dosage: 29 MG, QW
     Route: 042
     Dates: start: 20030522
  2. LASIX                              /00032601/ [Concomitant]
     Indication: PRODUCT USED FOR UNKNOWN INDICATION

REACTIONS (9)
  - Spinal cord disorder [Unknown]
  - Spinal compression fracture [Unknown]
  - Spinal disorder [Unknown]
  - Respiratory disorder [Not Recovered/Not Resolved]
  - Psychotic disorder [Not Recovered/Not Resolved]
  - Pain [Not Recovered/Not Resolved]
  - Neuralgia [Unknown]
  - Mobility decreased [Unknown]
  - Ligament sprain [Unknown]
